FAERS Safety Report 5738088-8 (Version None)
Quarter: 2008Q2

REPORT INFORMATION
  Report Type: 
  Country: None (occurrence: None)
  Receive Date: 20080514
  Receipt Date: 20080512
  Transmission Date: 20081010
  Serious: Yes (Death)
  Sender: FDA-Public Use
  Company Number: PL-ELI_LILLY_AND_COMPANY-PL200805002327

PATIENT
  Sex: Male

DRUGS (2)
  1. HUMULIN 70/30 [Suspect]
     Dates: start: 20040101
  2. ALCOHOL [Concomitant]

REACTIONS (2)
  - DEATH [None]
  - TREATMENT NONCOMPLIANCE [None]
